FAERS Safety Report 8610755-8 (Version None)
Quarter: 2012Q3

REPORT INFORMATION
  Report Type: 
  Country: None (occurrence: None)
  Receive Date: 20120822
  Receipt Date: 20120813
  Transmission Date: 20120928
  Serious: Yes (Hospitalization)
  Sender: FDA-Public Use
  Company Number: US-JNJFOC-20120806012

PATIENT
  Sex: Female

DRUGS (2)
  1. TYLENOL [Suspect]
     Indication: ANALGESIC THERAPY
     Route: 065
     Dates: start: 20110101
  2. TYLENOL [Suspect]
     Route: 065

REACTIONS (1)
  - HEPATIC FAILURE [None]
